FAERS Safety Report 7724996-5 (Version None)
Quarter: 2011Q3

REPORT INFORMATION
  Report Type: 
  Country: None (occurrence: None)
  Receive Date: 20110901
  Receipt Date: 20110823
  Transmission Date: 20111222
  Serious: Yes (Hospitalization, Other)
  Sender: FDA-Public Use
  Company Number: US-CELGENEUS-163-21880-11050155

PATIENT
  Sex: Male

DRUGS (2)
  1. COUMADIN [Concomitant]
     Route: 065
  2. REVLIMID [Suspect]
     Indication: MULTIPLE MYELOMA
     Dosage: 10 MILLIGRAM
     Route: 048
     Dates: start: 20110128

REACTIONS (5)
  - ANKLE FRACTURE [None]
  - FALL [None]
  - DIZZINESS [None]
  - DYSPNOEA [None]
  - PNEUMONIA [None]
